FAERS Safety Report 20935184 (Version 5)
Quarter: 2023Q2

REPORT INFORMATION
  Report Type: Report from Study
  Country: US (occurrence: US)
  Receive Date: 20220608
  Receipt Date: 20230502
  Transmission Date: 20230722
  Serious: No
  Sender: FDA-Public Use
  Company Number: US-ACADIA PHARMACEUTICALS INC.-ACA-2022-PIM-001722

PATIENT
  Age: 81 Year
  Sex: Male

DRUGS (23)
  1. NUPLAZID [Suspect]
     Active Substance: PIMAVANSERIN TARTRATE
     Indication: Parkinson^s disease
     Dosage: 34 MILLIGRAM
     Route: 048
     Dates: start: 20220114
  2. NUPLAZID [Suspect]
     Active Substance: PIMAVANSERIN TARTRATE
     Indication: Hallucination
     Dosage: 34 MILLIGRAM, QD
     Route: 048
     Dates: start: 20220418
  3. NUPLAZID [Suspect]
     Active Substance: PIMAVANSERIN TARTRATE
     Indication: Delusion
  4. NUPLAZID [Suspect]
     Active Substance: PIMAVANSERIN TARTRATE
     Indication: Parkinson^s disease psychosis
  5. SINEMET [Concomitant]
     Active Substance: CARBIDOPA\LEVODOPA
  6. LEVOTHYROXINE [Concomitant]
     Active Substance: LEVOTHYROXINE
  7. OMEPRAZOLE [Concomitant]
     Active Substance: OMEPRAZOLE
  8. CARBIDOPA\LEVODOPA [Concomitant]
     Active Substance: CARBIDOPA\LEVODOPA
  9. ENTACAPONE [Concomitant]
     Active Substance: ENTACAPONE
  10. CEVIMELINE [Concomitant]
     Active Substance: CEVIMELINE
  11. VENLAFAXINE [Concomitant]
     Active Substance: VENLAFAXINE HYDROCHLORIDE
  12. DOXYCYCLINE [Concomitant]
     Active Substance: DOXYCYCLINE
  13. GALANTAMINE [Concomitant]
     Active Substance: GALANTAMINE
  14. VITAMIN D3 [Concomitant]
     Active Substance: CHOLECALCIFEROL
  15. VITAMIN B COMPLEX [Concomitant]
     Active Substance: CYANOCOBALAMIN\DEXPANTHENOL\NIACINAMIDE\PYRIDOXINE HYDROCHLORIDE\RIBOFLAVIN 5^-PHOSPHATE SODIUM\THIA
  16. NAMENDA [Concomitant]
     Active Substance: MEMANTINE HYDROCHLORIDE
  17. MONTELUKAST [Concomitant]
     Active Substance: MONTELUKAST SODIUM
  18. ATORVASTATIN [Concomitant]
     Active Substance: ATORVASTATIN
  19. CLONAZEPAM [Concomitant]
     Active Substance: CLONAZEPAM
  20. MELATONIN [Concomitant]
     Active Substance: MELATONIN
  21. LATANOPROST [Concomitant]
     Active Substance: LATANOPROST
  22. ASTELIN [Concomitant]
     Active Substance: AZELASTINE HYDROCHLORIDE
  23. TYLENOL [Concomitant]
     Active Substance: ACETAMINOPHEN
     Dosage: PRN

REACTIONS (16)
  - Parkinson^s disease [Unknown]
  - COVID-19 [Recovered/Resolved]
  - Delusion [Unknown]
  - Sleep disorder [Unknown]
  - Mental status changes [Unknown]
  - General physical condition abnormal [Unknown]
  - Wrong technique in product usage process [Not Recovered/Not Resolved]
  - Delusion [Not Recovered/Not Resolved]
  - Motor dysfunction [Not Recovered/Not Resolved]
  - Cognitive disorder [Not Recovered/Not Resolved]
  - Dysphagia [Not Recovered/Not Resolved]
  - Gait disturbance [Unknown]
  - Hallucination [Unknown]
  - Hallucination [Unknown]
  - Agitation [Unknown]
  - Hallucination [Not Recovered/Not Resolved]

NARRATIVE: CASE EVENT DATE: 20220516
